FAERS Safety Report 12668771 (Version 4)
Quarter: 2018Q1

REPORT INFORMATION
  Report Type: Report from Study
  Country: GB (occurrence: GB)
  Receive Date: 20160819
  Receipt Date: 20180116
  Transmission Date: 20180508
  Serious: Yes (Hospitalization, Other)
  Sender: FDA-Public Use
  Company Number: GB-AMGEN-GBRSL2016106979

PATIENT
  Age: 81 Year
  Sex: Male

DRUGS (1)
  1. ARANESP [Suspect]
     Active Substance: DARBEPOETIN ALFA
     Indication: PRODUCT USED FOR UNKNOWN INDICATION
     Dosage: 50 MUG, UNK
     Route: 065

REACTIONS (5)
  - Rash generalised [Unknown]
  - Fluid retention [Unknown]
  - Dyspnoea [Unknown]
  - Cardiac disorder [Unknown]
  - Viral infection [Not Recovered/Not Resolved]

NARRATIVE: CASE EVENT DATE: 201711
